FAERS Safety Report 9027108 (Version 1)
Quarter: 2013Q1

REPORT INFORMATION
  Report Type: Spontaneous
  Country: BR (occurrence: BR)
  Receive Date: 20130123
  Receipt Date: 20130123
  Transmission Date: 20140127
  Serious: Yes (Hospitalization, Other)
  Sender: FDA-Public Use
  Company Number: BR-PFIZER INC-2013026256

PATIENT
  Age: 18 Year
  Sex: Female

DRUGS (2)
  1. EFEXOR XR [Suspect]
     Dosage: 75 MG, 1X/DAY
     Route: 048
  2. DEPAKOTE [Concomitant]
     Dosage: UNK

REACTIONS (1)
  - Dengue fever [Unknown]
